FAERS Safety Report 4545928-7 (Version None)
Quarter: 2005Q1

REPORT INFORMATION
  Report Type: 
  Country: None (occurrence: None)
  Receive Date: 20050103
  Receipt Date: 20041223
  Transmission Date: 20050727
  Serious: Yes (Other)
  Sender: FDA-Public Use
  Company Number: 2004113565

PATIENT
  Sex: Female

DRUGS (5)
  1. NEURONTIN [Suspect]
     Indication: CONVULSION
     Dosage: 1200 MG (400 MG , 3 IN 1 D)
     Dates: start: 20030701
  2. DILANTIN [Suspect]
     Indication: CONVULSION
     Dates: start: 20010101
  3. CARBAMAZEPINE [Suspect]
     Indication: CONVULSION
  4. RANTIDINE HYDROCHLORIDE (RANITIDINE HYDROCHLORIDE) [Concomitant]
  5. CALCIUM (CALCIUM) [Concomitant]

REACTIONS (9)
  - ANTICONVULSANT TOXICITY [None]
  - FATIGUE [None]
  - GAIT DISTURBANCE [None]
  - GRAND MAL CONVULSION [None]
  - PAIN [None]
  - PAIN IN EXTREMITY [None]
  - SLUGGISHNESS [None]
  - THERAPY NON-RESPONDER [None]
  - VISION BLURRED [None]
